FAERS Safety Report 6158392-1 (Version None)
Quarter: 2009Q2

REPORT INFORMATION
  Report Type: 
  Country: None (occurrence: None)
  Receive Date: 20090417
  Receipt Date: 20090414
  Transmission Date: 20091009
  Serious: Yes (Other)
  Sender: FDA-Public Use
  Company Number: US-ASTRAZENECA-2009UW09309

PATIENT
  Age: 64 Year
  Sex: Male
  Weight: 104.3 kg

DRUGS (10)
  1. ZOLADEX [Suspect]
     Route: 058
     Dates: start: 20080424
  2. ARIMIDEX [Suspect]
     Route: 048
     Dates: start: 20080424, end: 20080715
  3. ANDROGEL [Suspect]
     Dates: start: 20080424, end: 20080715
  4. FOLIC ACID [Concomitant]
  5. MULTI-VITAMIN [Concomitant]
  6. FISH OIL CAPSULE [Concomitant]
  7. ATENOLOL [Concomitant]
     Route: 048
  8. HYDROCHLOROTHIAZIDE [Concomitant]
     Route: 048
  9. SIMVASTATIN [Concomitant]
     Route: 048
  10. ASPIRIN [Concomitant]
     Route: 048

REACTIONS (1)
  - HYPOGONADISM [None]
